FAERS Safety Report 11381036 (Version 1)
Quarter: 2015Q3

REPORT INFORMATION
  Report Type: Spontaneous
  Country: GB (occurrence: GB)
  Receive Date: 20150814
  Receipt Date: 20150814
  Transmission Date: 20151125
  Serious: Yes (Disabling)
  Sender: FDA-Public Use
  Company Number: GB-TEVA-585199ACC

PATIENT
  Age: 81 Year
  Sex: Female
  Weight: 81 kg

DRUGS (4)
  1. OMEPRAZOLE. [Concomitant]
     Active Substance: OMEPRAZOLE
  2. ALLOPURINOL. [Concomitant]
     Active Substance: ALLOPURINOL
  3. AMLODIPINE [Concomitant]
     Active Substance: AMLODIPINE BESYLATE
  4. TRIMETHOPRIM. [Suspect]
     Active Substance: TRIMETHOPRIM
     Indication: URINARY TRACT INFECTION
     Dosage: 400 MILLIGRAM DAILY;
     Route: 048
     Dates: start: 20150716, end: 20150719

REACTIONS (6)
  - Respiratory distress [Not Recovered/Not Resolved]
  - Pulmonary congestion [Unknown]
  - Type IV hypersensitivity reaction [Recovering/Resolving]
  - Wheezing [Recovered/Resolved]
  - Rash maculo-papular [Unknown]
  - Excoriation [Unknown]

NARRATIVE: CASE EVENT DATE: 20150721
